FAERS Safety Report 7471906-4 (Version None)
Quarter: 2011Q2

REPORT INFORMATION
  Report Type: 
  Country: None (occurrence: None)
  Receive Date: 20110511
  Receipt Date: 20100709
  Transmission Date: 20111010
  Serious: No
  Sender: FDA-Public Use
  Company Number: A0869494A

PATIENT
  Age: 73 Year
  Sex: Female

DRUGS (12)
  1. TYKERB [Suspect]
     Indication: BREAST CANCER
     Dosage: 1250MG FIVE TIMES PER DAY
     Route: 048
     Dates: start: 20100510, end: 20100624
  2. XELODA [Concomitant]
     Indication: BREAST CANCER
     Route: 048
     Dates: start: 20100510, end: 20100624
  3. PERCOCET [Concomitant]
  4. HYDROCODONE BITARTRATE [Concomitant]
  5. K DUR [Concomitant]
  6. HERCEPTIN [Concomitant]
  7. NEURONTIN [Concomitant]
  8. LISINOPRIL [Concomitant]
  9. ATENOLOL [Concomitant]
  10. RANITIDINE [Concomitant]
  11. CENTRUM SILVER [Concomitant]
  12. UNKNOWN MEDICATION [Concomitant]

REACTIONS (2)
  - DIARRHOEA [None]
  - FATIGUE [None]
